FAERS Safety Report 7170147-8 (Version None)
Quarter: 2010Q4

REPORT INFORMATION
  Report Type: 
  Country: None (occurrence: None)
  Receive Date: 20101217
  Receipt Date: 20101207
  Transmission Date: 20110411
  Serious: Yes (Hospitalization)
  Sender: FDA-Public Use
  Company Number: BR-US-EMD SERONO, INC.-7031092

PATIENT
  Sex: Female

DRUGS (6)
  1. REBIF [Suspect]
     Indication: SECONDARY PROGRESSIVE MULTIPLE SCLEROSIS
  2. MACRODANTIN [Concomitant]
  3. PONDERA [Concomitant]
  4. FERROUS SULFATE TAB [Concomitant]
  5. COMPLEX B [Concomitant]
  6. IBUPROFEN [Concomitant]

REACTIONS (6)
  - ANAEMIA [None]
  - CENTRAL NERVOUS SYSTEM LESION [None]
  - MUSCLE SPASTICITY [None]
  - POSTURE ABNORMAL [None]
  - URINARY INCONTINENCE [None]
  - VISUAL IMPAIRMENT [None]
